FAERS Safety Report 25716738 (Version 3)
Quarter: 2025Q3

REPORT INFORMATION
  Report Type: Report from Study
  Country: US (occurrence: US)
  Receive Date: 20250822
  Receipt Date: 20250924
  Transmission Date: 20251021
  Serious: No
  Sender: MALLINCKRODT
  Company Number: US-MALLINCKRODT-MNK202505127

PATIENT
  Age: 52 Year
  Sex: Female

DRUGS (2)
  1. CORTICOTROPIN [Suspect]
     Active Substance: CORTICOTROPIN
     Indication: Product used for unknown indication
     Dates: start: 20250818
  2. BENLYSTA [Concomitant]
     Active Substance: BELIMUMAB

REACTIONS (8)
  - Frequent bowel movements [Unknown]
  - Injection site rash [Unknown]
  - Injection site erythema [Unknown]
  - Injection site mass [Recovering/Resolving]
  - Injection site pruritus [Recovering/Resolving]
  - Injection site paraesthesia [Recovering/Resolving]
  - Injection site swelling [Not Recovered/Not Resolved]
  - Injection site bruising [Not Recovered/Not Resolved]

NARRATIVE: CASE EVENT DATE: 20250101
